FAERS Safety Report 23663237 (Version 3)
Quarter: 2024Q2

REPORT INFORMATION
  Report Type: Report from Study
  Country: TW (occurrence: TW)
  Receive Date: 20240322
  Receipt Date: 20240508
  Transmission Date: 20240717
  Serious: Yes (Other)
  Sender: FDA-Public Use
  Company Number: TW-UCBSA-2024013876

PATIENT
  Age: 63 Year
  Sex: Male
  Weight: 64.5 kg

DRUGS (4)
  1. CIMZIA [Suspect]
     Active Substance: CERTOLIZUMAB PEGOL
     Indication: Rheumatoid arthritis
     Dosage: 400 MILLIGRAM, EV 2 WEEKS(QOW)
     Route: 058
     Dates: start: 20220411, end: 20220509
  2. CIMZIA [Suspect]
     Active Substance: CERTOLIZUMAB PEGOL
     Dosage: 400 MILLIGRAM, EV 4 WEEKS
     Route: 058
     Dates: start: 20220606, end: 20240318
  3. CELEBREX [Concomitant]
     Active Substance: CELECOXIB
     Indication: Rheumatoid arthritis
     Dosage: 200 MILLIGRAM, 2X/DAY (BID)
     Route: 048
     Dates: start: 20190926
  4. PREDNISOLONE [Concomitant]
     Active Substance: PREDNISOLONE
     Indication: Rheumatoid arthritis
     Dosage: 5 MILLIGRAM, 2X/DAY (BID)
     Route: 048
     Dates: start: 20230808

REACTIONS (9)
  - Atypical mycobacterial infection [Recovering/Resolving]
  - Interstitial lung disease [Recovered/Resolved]
  - Tuberculosis [Recovered/Resolved]
  - Connective tissue disorder [Recovered/Resolved]
  - Chest discomfort [Recovered/Resolved]
  - Lung infiltration [Recovered/Resolved]
  - Pleural fibrosis [Recovered/Resolved]
  - Pulmonary calcification [Recovered/Resolved]
  - Pleural effusion [Recovered/Resolved]

NARRATIVE: CASE EVENT DATE: 20240318
